FAERS Safety Report 8535052-0 (Version None)
Quarter: 2012Q3

REPORT INFORMATION
  Report Type: 
  Country: None (occurrence: None)
  Receive Date: 20120724
  Receipt Date: 20120717
  Transmission Date: 20120928
  Serious: Yes (Other)
  Sender: FDA-Public Use
  Company Number: JP-PFIZER INC-2012131688

PATIENT
  Age: 55 Year
  Sex: Male
  Weight: 52.2 kg

DRUGS (16)
  1. BISOPROLOL FUMARATE [Concomitant]
     Dosage: 5 MG, 1X/DAY
     Route: 048
     Dates: start: 20120323
  2. KREMEZIN [Concomitant]
     Dosage: 2 G, 3X/DAY
     Route: 048
     Dates: start: 20120323, end: 20120522
  3. ARGAMATE [Concomitant]
     Dosage: 50 G, 3X/DAY
     Route: 048
     Dates: start: 20120323
  4. DOXAZOSIN MESYLATE [Suspect]
     Dosage: 2.5 MG, 1X/DAY
  5. MUCOSTA [Concomitant]
     Dosage: 100 MG, 2X/DAY
     Route: 048
     Dates: start: 20120323
  6. MAGMITT [Concomitant]
     Dosage: 660 MG, 3X/DAY
     Route: 048
     Dates: start: 20120323, end: 20120522
  7. YODEL [Concomitant]
     Dosage: 1 DF, 1X/DAY
     Route: 048
     Dates: start: 20120525
  8. DIGOXIN [Concomitant]
     Dosage: 0.5 MG, 1X/DAY
     Route: 048
     Dates: start: 20120323
  9. ADALAT CC [Concomitant]
     Dosage: 20 MG, 2X/DAY
     Route: 048
     Dates: start: 20120323
  10. DOXAZOSIN MESYLATE [Suspect]
     Dosage: 2 MG, 1X/DAY
     Route: 048
     Dates: start: 20120530
  11. ZOLPIDEM [Suspect]
     Dosage: 1 DF, AS NEEDED
     Dates: start: 20120524, end: 20120602
  12. RASILEZ [Concomitant]
     Dosage: 150 MG, 2X/DAY
     Route: 048
     Dates: start: 20120323
  13. ISOSORBIDE MONONITRATE [Concomitant]
     Dosage: 20 MG, 2X/DAY
     Route: 048
     Dates: start: 20120323
  14. ISOSORBIDE DINITRATE [Concomitant]
     Dosage: UNK
     Route: 062
     Dates: start: 20120323
  15. ADALAT [Concomitant]
     Dosage: 10 MG, AS NEEDED
     Route: 048
     Dates: start: 20120515
  16. LASIX [Concomitant]
     Dosage: 20 MG, 1X/DAY
     Route: 048
     Dates: start: 20120323

REACTIONS (6)
  - ANXIETY [None]
  - SUICIDE ATTEMPT [None]
  - DEPRESSED MOOD [None]
  - BLOOD PRESSURE INCREASED [None]
  - DIZZINESS [None]
  - AGITATION [None]
